FAERS Safety Report 7380429-2 (Version None)
Quarter: 2011Q1

REPORT INFORMATION
  Report Type: 
  Country: None (occurrence: None)
  Receive Date: 20110329
  Receipt Date: 20110325
  Transmission Date: 20110831
  Serious: Yes (Death)
  Sender: FDA-Public Use
  Company Number: ES-ROCHE-766789

PATIENT
  Sex: Female
  Weight: 58.5 kg

DRUGS (12)
  1. FLUOXETINE HCL [Concomitant]
     Dates: start: 20110126
  2. CAPECITABINE [Suspect]
     Dosage: LAST DOSE PRIRO TO SAE: 02 MARCH 2011, DAY1-DAY8
     Route: 048
     Dates: start: 20100226
  3. METAMIZOL [Concomitant]
     Dates: start: 20110126
  4. ENALAPRIL MALEATE [Concomitant]
     Dates: start: 20100326
  5. OMEPRAZOLE [Concomitant]
     Dates: start: 20091209
  6. FLUOXETINE HCL [Concomitant]
     Dates: start: 20110304, end: 20110317
  7. HEPARIN SODIUM [Concomitant]
     Dates: start: 20100522
  8. BEVACIZUMAB [Suspect]
     Dosage: LAST DOSE PRIOR TO SAE: 02 MARCH 2011. FRM: INFUSION
     Route: 042
     Dates: start: 20100226
  9. PARACETAMOL [Concomitant]
     Dates: start: 20110223
  10. LACTULOSA [Concomitant]
     Dosage: 3.33G/5ML
     Route: 048
     Dates: start: 20110202, end: 20110317
  11. IRINOTECAN [Suspect]
     Dosage: LAST DOSE PRIOR TO SAE: 02 MARCH 2011. FORM: INFUSION
     Route: 042
     Dates: start: 20100226
  12. ONDANSETRON [Concomitant]
     Dates: start: 20100226

REACTIONS (1)
  - INTESTINAL OBSTRUCTION [None]
